FAERS Safety Report 26110503 (Version 1)
Quarter: 2025Q4

REPORT INFORMATION
  Report Type: Spontaneous
  Country: EU (occurrence: EU)
  Receive Date: 20251202
  Receipt Date: 20251202
  Transmission Date: 20260117
  Serious: Yes (Hospitalization, Other)
  Sender: DR REDDYS
  Company Number: None

PATIENT
  Age: 59 Year
  Sex: Male
  Weight: 90 kg

DRUGS (45)
  1. DAPTOMYCIN [Suspect]
     Active Substance: DAPTOMYCIN
     Indication: Endocarditis
     Dosage: RECEIVED 8 DAYS AS INPATIENT THEN RECEIVED 9 DAYS ON OUT PATIENT ANTIBIOTIC THERAPY (OPAT)
     Dates: start: 20251013, end: 20251103
  2. CITALOPRAM (GENERIC) [Concomitant]
     Indication: Product used for unknown indication
  3. BISOPROLOL (GENERIC) [Concomitant]
     Indication: Product used for unknown indication
     Dates: start: 20251022
  4. ZOLPIDEM [Concomitant]
     Active Substance: ZOLPIDEM TARTRATE
     Indication: Product used for unknown indication
     Dates: start: 20251022
  5. APIXABAN [Concomitant]
     Active Substance: APIXABAN
     Indication: Product used for unknown indication
     Dates: start: 20251022
  6. OLMESARTAN (GENERIC) (G) [Concomitant]
     Indication: Product used for unknown indication
  7. ALLOPURINOL [Concomitant]
     Active Substance: ALLOPURINOL
     Indication: Product used for unknown indication
  8. DUTASTERIDE [Concomitant]
     Active Substance: DUTASTERIDE
     Indication: Product used for unknown indication
  9. PANTOPRAZOLE [Concomitant]
     Active Substance: PANTOPRAZOLE
     Indication: Product used for unknown indication
  10. EZETIMIBE [Concomitant]
     Active Substance: EZETIMIBE
     Indication: Product used for unknown indication
  11. ROSUVASTATIN [Concomitant]
     Active Substance: ROSUVASTATIN
     Indication: Product used for unknown indication
     Dosage: ^WAS ON HOLD WHILE TAKING OFFENDING MEDICINE^
  12. ASPIRIN [Concomitant]
     Active Substance: ASPIRIN
     Indication: Product used for unknown indication
     Dates: start: 20251022
  13. COLCHICINE (G) [Concomitant]
     Indication: Product used for unknown indication
     Dates: start: 20251027
  14. AMIODARONE HYDROCHLORIDE (GENERIC) [Concomitant]
     Indication: Product used for unknown indication
     Dosage: 200MG BD THEN 200MG OD.
     Dates: start: 20251022
  15. GABAPENTIN [Concomitant]
     Active Substance: GABAPENTIN
     Indication: Product used for unknown indication
     Dates: start: 20251022
  16. DHEA (G) [Concomitant]
     Indication: Product used for unknown indication
  17. Cimeldine [Concomitant]
     Indication: Product used for unknown indication
     Route: 048
  18. CEFTRIAXONE [Concomitant]
     Active Substance: CEFTRIAXONE
     Indication: Product used for unknown indication
     Dates: start: 20250924
  19. VANCOMYCIN [Concomitant]
     Active Substance: VANCOMYCIN
     Indication: Product used for unknown indication
     Dosage: 1.5G OD, 1G BD, THEN 1.5G BD.
  20. VANCOMYCIN [Concomitant]
     Active Substance: VANCOMYCIN
     Dosage: 1.5G OD, 1G BD, THEN 1.5G BD.
  21. VANCOMYCIN [Concomitant]
     Active Substance: VANCOMYCIN
     Dosage: 1.5G OD, 1G BD, THEN 1.5G BD.
  22. AMOXICILLIN [Concomitant]
     Active Substance: AMOXICILLIN
     Indication: Product used for unknown indication
     Route: 042
     Dates: start: 20250924
  23. ENOXAPARIN [Concomitant]
     Active Substance: ENOXAPARIN
     Indication: Product used for unknown indication
  24. ACETAMINOPHEN [Concomitant]
     Active Substance: ACETAMINOPHEN
     Indication: Product used for unknown indication
  25. CALCIUM\CHOLECALCIFEROL [Concomitant]
     Active Substance: CALCIUM\CHOLECALCIFEROL
     Indication: Product used for unknown indication
     Dosage: 500MG/400IU.
     Dates: start: 20251003
  26. Exputex 250mg / 5ml Oral Solution [Concomitant]
     Indication: Product used for unknown indication
     Route: 048
     Dates: start: 20250529
  27. CEFAZOLIN [Concomitant]
     Active Substance: CEFAZOLIN
     Indication: Product used for unknown indication
     Dates: start: 20250927
  28. CHLORHEXIDINE (G) [Concomitant]
     Indication: Product used for unknown indication
  29. CYCLIZINE [Concomitant]
     Active Substance: CYCLIZINE
     Indication: Product used for unknown indication
     Dosage: PRN.
     Route: 048
     Dates: start: 20250929
  30. DICLOFENAC [Concomitant]
     Active Substance: DICLOFENAC
     Indication: Product used for unknown indication
     Dates: start: 20251011
  31. ESOMEPRAZOLE [Concomitant]
     Active Substance: ESOMEPRAZOLE
     Indication: Product used for unknown indication
     Dates: start: 20250930
  32. Galfer 305 mg Hard Capsules [Concomitant]
     Indication: Product used for unknown indication
     Route: 048
     Dates: start: 20250929
  33. FUROSEMIDE (G) [Concomitant]
     Indication: Product used for unknown indication
     Dates: start: 20250930
  34. HEPARIN (GENERIC) [Concomitant]
     Indication: Product used for unknown indication
     Dosage: 10 UNITS.
     Dates: start: 20251012
  35. IBUPROFEN [Concomitant]
     Active Substance: IBUPROFEN
     Indication: Product used for unknown indication
     Dosage: 400MG BD/ TDS PRN.
     Dates: start: 20251017
  36. LACTULOSE [Concomitant]
     Active Substance: LACTULOSE
     Indication: Product used for unknown indication
     Dates: start: 20250928
  37. MAGNESIUM [Concomitant]
     Active Substance: MAGNESIUM
     Indication: Product used for unknown indication
     Dosage: 1 SACHET PRN.
     Dates: start: 20250929
  38. NEFOPAM (G) [Concomitant]
     Indication: Product used for unknown indication
     Dosage: PRN.
     Dates: start: 20251003
  39. ONDANSETRON [Concomitant]
     Active Substance: ONDANSETRON
     Indication: Product used for unknown indication
     Dosage: PRN.
     Dates: start: 20250929
  40. OXYCODONE (G) [Concomitant]
     Indication: Product used for unknown indication
     Dosage: ^10MG, 5MG, 2.5MG PRN^?.
     Dates: start: 20250929
  41. PIPERACILLIN SODIUM\TAZOBACTAM SODIUM [Concomitant]
     Active Substance: PIPERACILLIN SODIUM\TAZOBACTAM SODIUM
     Indication: Product used for unknown indication
     Dates: start: 20251003
  42. POTASSIUM CHLORIDE [Concomitant]
     Active Substance: POTASSIUM CHLORIDE
     Indication: Product used for unknown indication
     Dosage: 1-3 TABS PRN.
  43. PROPOFOL [Concomitant]
     Active Substance: PROPOFOL
     Indication: Product used for unknown indication
     Dates: start: 20250926
  44. SALBUTAMOL (G) [Concomitant]
     Indication: Product used for unknown indication
     Dates: start: 20251003
  45. SENOKOT 7.5MG TABLETS [Concomitant]
     Indication: Product used for unknown indication
     Route: 048
     Dates: start: 20250929

REACTIONS (1)
  - Pneumonitis [Recovering/Resolving]

NARRATIVE: CASE EVENT DATE: 20251027
